FAERS Safety Report 7618529-1 (Version None)
Quarter: 2011Q3

REPORT INFORMATION
  Report Type: 
  Country: None (occurrence: None)
  Receive Date: 20110718
  Receipt Date: 20110711
  Transmission Date: 20111222
  Serious: Yes (Hospitalization, Other)
  Sender: FDA-Public Use
  Company Number: US-BAYER-201026346NA

PATIENT
  Age: 29 Year
  Sex: Female
  Weight: 115.65 kg

DRUGS (20)
  1. YASMIN [Suspect]
     Indication: VAGINAL HAEMORRHAGE
     Dosage: 2 DF, QD
     Route: 048
     Dates: start: 20050401, end: 20050701
  2. SPIRONOLACTONE [Concomitant]
     Dosage: 25 MG, UNK
     Dates: start: 20050427
  3. LUPRON [Concomitant]
     Dosage: PLAN: 6 MONTHS
     Route: 030
     Dates: start: 20041101, end: 20050415
  4. PROTONIX [Concomitant]
  5. LEVAQUIN [Concomitant]
  6. PHENERGAN HCL [Concomitant]
  7. NORCO [Concomitant]
     Dosage: UNK
     Dates: start: 20050524
  8. ALBUTEROL SULFATE AUTOHALER [Concomitant]
  9. ATIVAN [Concomitant]
  10. LEVOTHYROXINE SODIUM [Concomitant]
     Dosage: UNK
     Dates: start: 20050501, end: 20050801
  11. VALTREX [Concomitant]
  12. MEPERIDINE HCL [Concomitant]
  13. SYNTHROID [Concomitant]
     Dosage: UNK
     Dates: start: 19980101
  14. IRON SULFATETHIAMIN COMPOUND TAB [Concomitant]
  15. LORTAB [Concomitant]
  16. ANZEMET [Concomitant]
  17. COLACE [Concomitant]
  18. ZYRTEC-D 12 HOUR [Concomitant]
     Dosage: UNK
     Dates: start: 20050505
  19. PROMETHAZINE [Concomitant]
     Dosage: UNK
     Dates: start: 20050524
  20. ZOSYN [Concomitant]
     Dosage: 0.375 MG, UNK
     Route: 042

REACTIONS (9)
  - DEEP VEIN THROMBOSIS [None]
  - CHEST PAIN [None]
  - HEADACHE [None]
  - VOMITING [None]
  - DYSPNOEA [None]
  - THROMBOPHLEBITIS SUPERFICIAL [None]
  - THROMBOSIS [None]
  - NAUSEA [None]
  - PULMONARY EMBOLISM [None]
